FAERS Safety Report 18161227 (Version 2)
Quarter: 2020Q3

REPORT INFORMATION
  Report Type: Spontaneous
  Country: GB (occurrence: GB)
  Receive Date: 20200817
  Receipt Date: 20200824
  Transmission Date: 20201103
  Serious: Yes (Disabling, Other)
  Sender: FDA-Public Use
  Company Number: GB-ELI_LILLY_AND_COMPANY-GB202008004181

PATIENT
  Age: 18 Year
  Sex: Male

DRUGS (3)
  1. ATOMOXETINE HYDROCHLORIDE. [Suspect]
     Active Substance: ATOMOXETINE HYDROCHLORIDE
     Indication: PRODUCT USED FOR UNKNOWN INDICATION
     Dosage: 80 MG, UNKNOWN
     Route: 065
     Dates: end: 20200724
  2. CALPOL [Concomitant]
     Active Substance: ACETAMINOPHEN
     Indication: PRODUCT USED FOR UNKNOWN INDICATION
  3. ATOMOXETINE. [Suspect]
     Active Substance: ATOMOXETINE HYDROCHLORIDE
     Indication: ATTENTION DEFICIT HYPERACTIVITY DISORDER
     Dosage: 80 MG, UNKNOWN
     Route: 065

REACTIONS (16)
  - Athetosis [Recovered/Resolved]
  - Eating disorder [Unknown]
  - Anxiety [Unknown]
  - Skin discolouration [Unknown]
  - Repetitive speech [Not Recovered/Not Resolved]
  - Middle insomnia [Unknown]
  - Abdominal pain [Unknown]
  - Product substitution issue [Unknown]
  - Dysphagia [Unknown]
  - Aggression [Not Recovered/Not Resolved]
  - Constipation [Unknown]
  - Hallucination [Not Recovered/Not Resolved]
  - Drooling [Not Recovered/Not Resolved]
  - Headache [Unknown]
  - Facial paralysis [Unknown]
  - Emotional disorder [Not Recovered/Not Resolved]
